FAERS Safety Report 17988113 (Version 1)
Quarter: 2020Q3

REPORT INFORMATION
  Report Type: Spontaneous
  Country: FR (occurrence: FR)
  Receive Date: 20200707
  Receipt Date: 20200707
  Transmission Date: 20201103
  Serious: Yes (Life-Threatening)
  Sender: FDA-Public Use
  Company Number: FR-ACCORD-189302

PATIENT
  Age: 83 Year
  Sex: Male
  Weight: 70 kg

DRUGS (9)
  1. DAFALGAN [Concomitant]
     Active Substance: ACETAMINOPHEN
  2. PANTOPRAZOLE [Concomitant]
     Active Substance: PANTOPRAZOLE
  3. HEMIGOXINE NATIVELLE [Concomitant]
     Active Substance: DIGOXIN
     Dosage: 0.125 MG
  4. TRIATEC [Concomitant]
  5. PREVISCAN (FLUINDIONE) [Suspect]
     Active Substance: FLUINDIONE
     Indication: ATRIAL FIBRILLATION
     Route: 048
     Dates: end: 20200515
  6. FUROSEMIDE. [Concomitant]
     Active Substance: FUROSEMIDE
  7. UVEDOSE [Concomitant]
     Active Substance: CHOLECALCIFEROL
  8. SIMVASTATIN. [Suspect]
     Active Substance: SIMVASTATIN
     Indication: DYSLIPIDAEMIA
     Route: 048
  9. ALDACTONE [Concomitant]
     Active Substance: SPIRONOLACTONE
     Dosage: 25 MG, SCORED FILM?COATED TABLET

REACTIONS (3)
  - Intracranial pressure increased [Recovered/Resolved]
  - Coma [Recovered/Resolved]
  - Subdural haematoma [Recovered/Resolved with Sequelae]

NARRATIVE: CASE EVENT DATE: 20200515
